FAERS Safety Report 9397403 (Version 1)
Quarter: 2013Q3

REPORT INFORMATION
  Report Type: Spontaneous
  Country: CA (occurrence: CA)
  Receive Date: 20130712
  Receipt Date: 20130712
  Transmission Date: 20140515
  Serious: Yes (Life-Threatening, Hospitalization)
  Sender: FDA-Public Use
  Company Number: CA-ROCHE-1247976

PATIENT
  Age: 42 Year
  Sex: Male
  Weight: 75 kg

DRUGS (11)
  1. TNKASE [Suspect]
     Indication: PRODUCT USED FOR UNKNOWN INDICATION
     Dosage: POWDER FOR SOLUTION INTRAVENOUS
     Route: 042
  2. ASPIRIN [Interacting]
     Indication: PRODUCT USED FOR UNKNOWN INDICATION
     Route: 048
  3. ASPIRIN [Interacting]
     Route: 048
  4. LOVENOX [Interacting]
     Indication: PRODUCT USED FOR UNKNOWN INDICATION
     Dosage: SOLUTION SUBCUTANEOUS
     Route: 058
  5. LOVENOX [Interacting]
     Route: 042
  6. LOVENOX [Interacting]
     Route: 058
  7. LOVENOX [Interacting]
     Route: 058
  8. PLAVIX [Interacting]
     Indication: PRODUCT USED FOR UNKNOWN INDICATION
     Route: 048
  9. PLAVIX [Interacting]
     Route: 048
  10. CARBAMAZEPINE [Concomitant]
     Route: 065
  11. CEFTRIAXONE [Concomitant]

REACTIONS (10)
  - Aphasia [Not Recovered/Not Resolved]
  - Asthenia [Not Recovered/Not Resolved]
  - Cerebral haemorrhage [Not Recovered/Not Resolved]
  - Cerebrovascular accident [Not Recovered/Not Resolved]
  - Drug interaction [Unknown]
  - Dysarthria [Not Recovered/Not Resolved]
  - Hemiparesis [Not Recovered/Not Resolved]
  - Hypoaesthesia [Not Recovered/Not Resolved]
  - Agnosia [Unknown]
  - Haemorrhagic stroke [Unknown]
